FAERS Safety Report 13236444 (Version 3)
Quarter: 2017Q2

REPORT INFORMATION
  Report Type: Spontaneous
  Country: US (occurrence: US)
  Receive Date: 20170215
  Receipt Date: 20170426
  Transmission Date: 20170830
  Serious: Yes (Other)
  Sender: FDA-Public Use
  Company Number: US-TEVA-726568USA

PATIENT
  Age: 46 Year
  Sex: Male
  Weight: 138 kg

DRUGS (2)
  1. CIPROFLOXACIN. [Suspect]
     Active Substance: CIPROFLOXACIN
  2. CEFALEXIN [Suspect]
     Active Substance: CEPHALEXIN
     Route: 048

REACTIONS (13)
  - Abdominal pain upper [Recovered/Resolved]
  - Dysuria [Recovered/Resolved]
  - Product taste abnormal [Unknown]
  - Product label confusion [Unknown]
  - Muscle tightness [Recovered/Resolved]
  - Chest pain [Recovered/Resolved]
  - Internal injury [Unknown]
  - Gastrointestinal disorder [Unknown]
  - Product use issue [Unknown]
  - Abdominal pain [Recovered/Resolved]
  - Dyspepsia [Recovered/Resolved]
  - Headache [Recovered/Resolved]
  - Gastrooesophageal reflux disease [Unknown]

NARRATIVE: CASE EVENT DATE: 20161223
